FAERS Safety Report 7409673-2 (Version None)
Quarter: 2011Q2

REPORT INFORMATION
  Report Type: 
  Country: None (occurrence: None)
  Receive Date: 20110412
  Receipt Date: 20110401
  Transmission Date: 20111010
  Serious: Yes (Hospitalization)
  Sender: FDA-Public Use
  Company Number: US-MPIJNJ-2011-01070

PATIENT
  Sex: Male
  Weight: 81.8 kg

DRUGS (16)
  1. TENORMIN [Concomitant]
     Indication: HYPERTENSION
     Dosage: 25 MG, QD
  2. ZOCOR [Concomitant]
     Indication: HYPERCHOLESTEROLAEMIA
     Dosage: 15 MG, QD
  3. STOOL SOFTENER [Concomitant]
     Indication: CONSTIPATION PROPHYLAXIS
     Dosage: 100 MG, PRN
  4. HYDROCHLOROTHIAZIDE [Concomitant]
     Indication: HYPERTENSION
     Dosage: 12.5 MG, QD
  5. MIRALAX [Concomitant]
     Indication: CONSTIPATION PROPHYLAXIS
     Dosage: 3 UNK, QD
  6. DECADRON [Suspect]
     Indication: MULTIPLE MYELOMA
     Dosage: 40 MG, CYCLIC
     Route: 048
     Dates: start: 20101119
  7. FRAGMIN [Concomitant]
     Indication: DEEP VEIN THROMBOSIS
     Dosage: 12500 IU, QD
     Route: 058
  8. ZOFRAN [Concomitant]
     Indication: NAUSEA
     Dosage: 8 MG, PRN
  9. ZOFRAN [Concomitant]
     Indication: VOMITING
  10. PRIMIDONE [Concomitant]
     Indication: PRODUCT USED FOR UNKNOWN INDICATION
     Dosage: 50 MG, BID
  11. LACTULOSE [Concomitant]
     Indication: CONSTIPATION
     Dosage: 20 G, PRN
  12. MAGNESIUM CITRATE [Concomitant]
     Indication: CONSTIPATION
     Dosage: UNK
  13. ACETAMINOPHEN AND HYDROCODONE BITARTRATE [Concomitant]
     Indication: PAIN
     Dosage: UNK
  14. VELCADE [Suspect]
     Indication: MULTIPLE MYELOMA
     Dosage: 1.6 MG/M2, CYCLIC
     Route: 042
     Dates: start: 20101119
  15. PRILOSEC [Concomitant]
     Indication: PRODUCT USED FOR UNKNOWN INDICATION
     Dosage: 40 MG, QD
  16. LOMOTIL                            /00034001/ [Concomitant]
     Indication: DIARRHOEA
     Dosage: UNK

REACTIONS (4)
  - INTERVERTEBRAL DISC DISORDER [None]
  - MUSCULAR WEAKNESS [None]
  - LUMBAR SPINAL STENOSIS [None]
  - RADICULOPATHY [None]
